FAERS Safety Report 7238563-3 (Version None)
Quarter: 2011Q1

REPORT INFORMATION
  Report Type: 
  Country: None (occurrence: None)
  Receive Date: 20110118
  Receipt Date: 20101230
  Transmission Date: 20110831
  Serious: Yes (Hospitalization)
  Sender: FDA-Public Use
  Company Number: 2011000011

PATIENT
  Age: 64 Year
  Sex: Female

DRUGS (3)
  1. RADIATION THERAPY [Concomitant]
  2. TARCEVA [Suspect]
     Indication: PANCREATIC CARCINOMA
     Dosage: (100 MG, M-F), ORAL
     Route: 048
     Dates: start: 20100802
  3. XELODA [Concomitant]

REACTIONS (2)
  - FATIGUE [None]
  - PAIN [None]
